FAERS Safety Report 4458241-3 (Version None)
Quarter: 2004Q3

REPORT INFORMATION
  Report Type: 
  Country: None (occurrence: None)
  Receive Date: 20040924
  Receipt Date: 20040914
  Transmission Date: 20050211
  Serious: Yes (Hospitalization)
  Sender: FDA-Public Use
  Company Number: FR-BRISTOL-MYERS SQUIBB COMPANY-12703104

PATIENT
  Sex: Male

DRUGS (4)
  1. REYATAZ [Suspect]
     Indication: HIV INFECTION
     Route: 048
     Dates: start: 20040601
  2. PARACETAMOL [Suspect]
     Indication: ASTHENIA
     Route: 048
     Dates: start: 20040801
  3. NORVIR [Concomitant]
     Indication: HIV INFECTION
     Dates: start: 20040601
  4. TRIZIVIR [Concomitant]
     Indication: HIV INFECTION

REACTIONS (1)
  - CYTOLYTIC HEPATITIS [None]
